FAERS Safety Report 7682980-4 (Version None)
Quarter: 2011Q3

REPORT INFORMATION
  Report Type: 
  Country: None (occurrence: None)
  Receive Date: 20110812
  Receipt Date: 20110812
  Transmission Date: 20111222
  Serious: Yes (Disabling, Other)
  Sender: FDA-Public Use
  Company Number: None

PATIENT
  Age: 71 Year
  Sex: Female
  Weight: 90.7194 kg

DRUGS (6)
  1. LISINOPRIL [Concomitant]
  2. ZYRTEC [Concomitant]
  3. OXYCONTIN [Concomitant]
  4. SINGULAIR [Suspect]
     Indication: ASTHMA
     Dosage: 1 DAY ORAL
     Route: 048
     Dates: start: 20070101, end: 20110101
  5. NORVASC [Concomitant]
  6. VICODIN [Concomitant]

REACTIONS (1)
  - RETINAL HAEMORRHAGE [None]
